FAERS Safety Report 7972802-6 (Version None)
Quarter: 2011Q4

REPORT INFORMATION
  Report Type: 
  Country: None (occurrence: None)
  Receive Date: 20111213
  Receipt Date: 20111209
  Transmission Date: 20120403
  Serious: Yes (Other)
  Sender: FDA-Public Use
  Company Number: US-PFIZER INC-2011135399

PATIENT
  Sex: Male

DRUGS (4)
  1. CHANTIX [Suspect]
     Indication: SMOKING CESSATION THERAPY
     Dosage: UNK
     Dates: start: 20080201, end: 20080601
  2. PROAIR HFA [Concomitant]
     Indication: ASTHMA
     Dosage: UNK
     Dates: start: 20000101
  3. CHANTIX [Suspect]
     Dosage: UNK
     Dates: start: 20080901, end: 20081001
  4. CHANTIX [Suspect]
     Dosage: UNK
     Dates: start: 20090401, end: 20090501

REACTIONS (4)
  - DEPRESSION [None]
  - ANXIETY [None]
  - SUICIDAL BEHAVIOUR [None]
  - AGGRESSION [None]
